FAERS Safety Report 23141999 (Version 1)
Quarter: 2023Q4

REPORT INFORMATION
  Report Type: Report from Study
  Country: US (occurrence: None)
  Receive Date: 20231103
  Receipt Date: 20231103
  Transmission Date: 20240110
  Serious: Yes (Other)
  Sender: FDA-Public Use
  Company Number: 2023A246785

PATIENT
  Age: 875 Month
  Sex: Female

DRUGS (1)
  1. TAGRISSO [Suspect]
     Active Substance: OSIMERTINIB
     Indication: Non-small cell lung cancer
     Route: 048
     Dates: start: 20220525

REACTIONS (3)
  - Thrombosis [Unknown]
  - Scar [Unknown]
  - Joint swelling [Unknown]

NARRATIVE: CASE EVENT DATE: 20231001
